FAERS Safety Report 4277856-9 (Version None)
Quarter: 2004Q1

REPORT INFORMATION
  Report Type: 
  Country: None (occurrence: None)
  Receive Date: 20040123
  Receipt Date: 20040115
  Transmission Date: 20041129
  Serious: Yes (Hospitalization, Other)
  Sender: FDA-Public Use
  Company Number: PHEH2004US00889

PATIENT
  Age: 46 Year
  Sex: Male
  Weight: 136 kg

DRUGS (3)
  1. TEGRETOL [Suspect]
     Indication: CONVULSION
     Route: 048
     Dates: start: 20000101, end: 20020101
  2. DEPAKOTE [Concomitant]
  3. DILANTIN [Concomitant]

REACTIONS (5)
  - BRAIN OPERATION [None]
  - COGNITIVE DISORDER [None]
  - DRUG INEFFECTIVE [None]
  - GRAND MAL CONVULSION [None]
  - WHITE BLOOD CELL COUNT DECREASED [None]
